FAERS Safety Report 17608233 (Version 2)
Quarter: 2020Q2

REPORT INFORMATION
  Report Type: Spontaneous
  Country: CO (occurrence: CO)
  Receive Date: 20200401
  Receipt Date: 20200407
  Transmission Date: 20200713
  Serious: Yes (Death, Other)
  Sender: FDA-Public Use
  Company Number: CO-TERSERA THERAPEUTICS LLC-2020TRS000779

PATIENT

DRUGS (1)
  1. ZOLADEX [Suspect]
     Active Substance: GOSERELIN ACETATE
     Indication: PROSTATE CANCER
     Dosage: 10.8 MILLIGRAM, EVERY THREE MONTHS
     Route: 058
     Dates: start: 20170914, end: 20190607

REACTIONS (5)
  - Urinary tract infection [Unknown]
  - Metastases to bone [Fatal]
  - Metastases to spine [Fatal]
  - Pain [Unknown]
  - Metastases to lymph nodes [Fatal]

NARRATIVE: CASE EVENT DATE: 202002
